FAERS Safety Report 7857249-5 (Version None)
Quarter: 2011Q4

REPORT INFORMATION
  Report Type: 
  Country: None (occurrence: None)
  Receive Date: 20111027
  Receipt Date: 20111019
  Transmission Date: 20120403
  Serious: Yes (Hospitalization)
  Sender: FDA-Public Use
  Company Number: US-BIOGENIDEC-2005BI019048

PATIENT
  Age: 46 Year
  Sex: Female

DRUGS (3)
  1. AVONEX [Suspect]
     Indication: MULTIPLE SCLEROSIS
     Route: 030
     Dates: start: 20050916
  2. AVONEX [Suspect]
     Route: 030
     Dates: start: 20030401
  3. AVONEX [Suspect]
     Route: 030

REACTIONS (2)
  - ARTHRITIS INFECTIVE [None]
  - KNEE ARTHROPLASTY [None]
